FAERS Safety Report 21117301 (Version 1)
Quarter: 2022Q3

REPORT INFORMATION
  Report Type: Spontaneous
  Country: US (occurrence: None)
  Receive Date: 20220722
  Receipt Date: 20220722
  Transmission Date: 20221027
  Serious: Yes (Hospitalization, Other)
  Sender: FDA-Public Use
  Company Number: US-VistaPharm, Inc.-VER202207-000587

PATIENT
  Age: 19 Year
  Sex: Male

DRUGS (17)
  1. ACETAMINOPHEN\HYDROCODONE [Suspect]
     Active Substance: ACETAMINOPHEN\HYDROCODONE
     Indication: Central pain syndrome
     Dosage: 1000 MG
     Route: 065
  2. METHADONE [Suspect]
     Active Substance: METHADONE HYDROCHLORIDE
     Indication: Central pain syndrome
     Dosage: 10 MG (CONTINUOUS)
     Route: 065
  3. METHADONE [Suspect]
     Active Substance: METHADONE HYDROCHLORIDE
     Dosage: 20 MG (CONTINUOUS)
     Route: 065
  4. GABAPENTIN [Concomitant]
     Active Substance: GABAPENTIN
     Indication: Central pain syndrome
     Dosage: UNKNOWN
     Route: 065
  5. HYDROMORPHONE [Concomitant]
     Active Substance: HYDROMORPHONE
     Indication: Central pain syndrome
     Dosage: 3 MG (PATIENT CONTROLLED ANALGESIA)
     Route: 065
  6. HYDROMORPHONE [Concomitant]
     Active Substance: HYDROMORPHONE
     Dosage: 3 MG
     Route: 065
  7. IBUPROFEN [Concomitant]
     Active Substance: IBUPROFEN
     Indication: Central pain syndrome
     Dosage: 800 MG
     Route: 065
  8. NORTRIPTYLINE [Concomitant]
     Active Substance: NORTRIPTYLINE
     Indication: Central pain syndrome
     Dosage: UNKNOWN
     Route: 065
  9. PREGABALIN [Concomitant]
     Active Substance: PREGABALIN
     Indication: Central pain syndrome
     Dosage: UNKNOWN
     Route: 065
  10. PREDNISONE [Concomitant]
     Active Substance: PREDNISONE
     Indication: Central pain syndrome
     Dosage: 40 MG (TAPER)
     Route: 065
  11. LIDOCAINE [Concomitant]
     Active Substance: LIDOCAINE
     Indication: Central pain syndrome
     Dosage: 1 MG/KG
     Route: 040
  12. LIDOCAINE [Concomitant]
     Active Substance: LIDOCAINE
     Dosage: 15 MCG/KG/MINUTE (MIN)
     Route: 042
  13. LIDOCAINE [Concomitant]
     Active Substance: LIDOCAINE
     Dosage: 35 MCG/KG/H (UP TITRATED)
     Route: 042
  14. LIDOCAINE [Concomitant]
     Active Substance: LIDOCAINE
     Dosage: 30 MCG/KG/H (DECREASED OUT OF CAUTION)
     Route: 042
  15. MEXILETINE [Concomitant]
     Active Substance: MEXILETINE
     Indication: Central pain syndrome
     Dosage: 50 MG
     Route: 065
  16. MEXILETINE [Concomitant]
     Active Substance: MEXILETINE
     Dosage: 150 MG (TITRATED)
     Route: 065
  17. MEXILETINE [Concomitant]
     Active Substance: MEXILETINE
     Dosage: 200 MG (ULTIMATELY)
     Route: 065

REACTIONS (5)
  - Hyperaesthesia [Recovered/Resolved]
  - Toxicity to various agents [Recovered/Resolved]
  - Hypoventilation [Recovered/Resolved]
  - Off label use [Unknown]
  - Drug ineffective [Unknown]
